FAERS Safety Report 5266154-2 (Version None)
Quarter: 2007Q1

REPORT INFORMATION
  Report Type: 
  Country: None (occurrence: None)
  Receive Date: 20070315
  Receipt Date: 20070305
  Transmission Date: 20070707
  Serious: Yes (Hospitalization, Other)
  Sender: FDA-Public Use
  Company Number: JP-BRISTOL-MYERS SQUIBB COMPANY-13502687

PATIENT
  Age: 40 Year
  Sex: Male

DRUGS (5)
  1. EFAVIRENZ [Suspect]
     Indication: HIV INFECTION
     Route: 048
     Dates: start: 20060727, end: 20060830
  2. TRUVADA [Suspect]
     Indication: HIV INFECTION
     Route: 048
     Dates: start: 20060727, end: 20060830
  3. PYRIMETHAMINE TAB [Suspect]
     Indication: TOXOPLASMOSIS
     Dosage: 200 MG ON 19-MAY-2006, 100 MG 20-MAY-2006 TO UNKNOWN, 75 MG 06-JUN-2006 TO 18-AUG-2006
     Route: 048
     Dates: start: 20060819, end: 20060830
  4. SULFADIAZINE [Suspect]
     Indication: TOXOPLASMOSIS
     Dosage: 1.5 GM 4DAILY 19-MAY-05-JUN-2006, 1 GM4DAILY 06-JUN-18-AUG-2006, 0.5GM4XDAIY 19-AUGTO30-AUG-2006
     Route: 048
     Dates: start: 20060819, end: 20060830
  5. RIFAMPICIN [Concomitant]

REACTIONS (3)
  - GASTROENTERITIS STAPHYLOCOCCAL [None]
  - RENAL FAILURE ACUTE [None]
  - STAPHYLOCOCCAL SEPSIS [None]
